FAERS Safety Report 12205195 (Version 7)
Quarter: 2019Q3

REPORT INFORMATION
  Report Type: Report from Study
  Country: US (occurrence: US)
  Receive Date: 20160323
  Receipt Date: 20190826
  Transmission Date: 20191004
  Serious: Yes (Other)
  Sender: FDA-Public Use
  Company Number: US-JNJFOC-20160105889

PATIENT
  Age: 71 Year
  Sex: Male

DRUGS (19)
  1. VENCLEXTA [Suspect]
     Active Substance: VENETOCLAX
     Indication: CHRONIC LYMPHOCYTIC LEUKAEMIA
     Route: 065
     Dates: start: 20180423
  2. BETA CAROTENE. [Concomitant]
     Active Substance: BETA CAROTENE
  3. COENZYME Q10 [Concomitant]
     Active Substance: UBIDECARENONE
  4. VALTREX [Concomitant]
     Active Substance: VALACYCLOVIR HYDROCHLORIDE
  5. COCONUT OIL [Concomitant]
     Active Substance: COCONUT OIL
  6. ZETIA [Concomitant]
     Active Substance: EZETIMIBE
  7. ZANTAC [Concomitant]
     Active Substance: RANITIDINE HYDROCHLORIDE
  8. VENCLEXTA [Suspect]
     Active Substance: VENETOCLAX
     Route: 048
     Dates: start: 201804
  9. MYLANTA [Concomitant]
     Active Substance: ALUMINUM HYDROXIDE\DIMETHICONE\MAGNESIUM HYDROXIDE
  10. SILYBUM MARIANUM [Concomitant]
     Active Substance: DIETARY SUPPLEMENT\HERBALS\MILK THISTLE
  11. IMBRUVICA [Suspect]
     Active Substance: IBRUTINIB
     Indication: CHRONIC LYMPHOCYTIC LEUKAEMIA
     Dosage: 140 MG, QD
     Route: 048
     Dates: start: 20151020
  12. IMBRUVICA [Suspect]
     Active Substance: IBRUTINIB
     Dosage: UNK
     Route: 048
  13. IMBRUVICA [Suspect]
     Active Substance: IBRUTINIB
     Dosage: UNK
     Route: 048
  14. PROTONIX [Suspect]
     Active Substance: PANTOPRAZOLE SODIUM
     Indication: PRODUCT USED FOR UNKNOWN INDICATION
  15. INDERAL [Concomitant]
     Active Substance: PROPRANOLOL HYDROCHLORIDE
     Indication: CARDIAC DISORDER
     Dosage: 10 MG, QHS
  16. MAALOX TC [Concomitant]
     Active Substance: ALUMINUM HYDROXIDE\MAGNESIUM HYDROXIDE
  17. VITAMIN D [Concomitant]
     Active Substance: VITAMIN D NOS
  18. ZINC. [Concomitant]
     Active Substance: ZINC
  19. AMLODIPINE [Concomitant]
     Active Substance: AMLODIPINE BESYLATE

REACTIONS (23)
  - Emotional disorder [Recovering/Resolving]
  - Neutropenia [Unknown]
  - Catheterisation cardiac [Unknown]
  - Burning sensation [Recovering/Resolving]
  - Chest discomfort [Recovered/Resolved]
  - Pollakiuria [Recovering/Resolving]
  - Stomatitis [Not Recovered/Not Resolved]
  - Palpitations [Recovered/Resolved]
  - Biliary adenoma [Unknown]
  - Oral discomfort [Recovered/Resolved]
  - Drug intolerance [Unknown]
  - Atrial fibrillation [Unknown]
  - Kidney angiomyolipoma [Unknown]
  - Bradycardia [Unknown]
  - Oral pain [Unknown]
  - Glossodynia [Unknown]
  - Gastrointestinal disorder [Unknown]
  - White blood cell count decreased [Recovering/Resolving]
  - Back pain [Not Recovered/Not Resolved]
  - Erythema [Not Recovered/Not Resolved]
  - Lymphadenopathy [Unknown]
  - Thrombocytopenia [Recovering/Resolving]
  - Body temperature decreased [Unknown]

NARRATIVE: CASE EVENT DATE: 201511
